FAERS Safety Report 16813736 (Version 1)
Quarter: 2019Q3

REPORT INFORMATION
  Report Type: Spontaneous
  Country: US (occurrence: US)
  Receive Date: 20190917
  Receipt Date: 20190917
  Transmission Date: 20191005
  Serious: No
  Sender: FDA-Public Use
  Company Number: US-JNJFOC-20190908747

PATIENT
  Sex: Female
  Weight: 68.1 kg

DRUGS (3)
  1. TYLENOL [Suspect]
     Active Substance: ACETAMINOPHEN
     Indication: FIBROMYALGIA
  2. TYLENOL [Suspect]
     Active Substance: ACETAMINOPHEN
     Indication: ARTHRITIS
     Dosage: PRODUCT DOSE OR QUANTITY: 2 AT A TIME TAKING IT FOR YEARS AS NEEDED.
     Route: 048
  3. TYLENOL [Suspect]
     Active Substance: ACETAMINOPHEN
     Indication: PAIN

REACTIONS (6)
  - Drug hypersensitivity [Not Recovered/Not Resolved]
  - Rhinalgia [Not Recovered/Not Resolved]
  - Drug ineffective [Unknown]
  - Eye pain [Not Recovered/Not Resolved]
  - Product contamination physical [Unknown]
  - Headache [Not Recovered/Not Resolved]
